FAERS Safety Report 9760168 (Version 1)
Quarter: 2013Q4

REPORT INFORMATION
  Report Type: Spontaneous
  Country: US (occurrence: US)
  Receive Date: 20131216
  Receipt Date: 20131216
  Transmission Date: 20140711
  Serious: No
  Sender: FDA-Public Use
  Company Number: US-BAYER-2013-146548

PATIENT
  Age: 66 Year
  Sex: Female

DRUGS (1)
  1. CIPRO 5 % ORAL SUSPENSION [Suspect]
     Indication: URINARY TRACT INFECTION
     Dosage: UNK
     Dates: start: 20131125

REACTIONS (3)
  - Incorrect route of drug administration [None]
  - Medication error [None]
  - Diarrhoea [None]
